FAERS Safety Report 17159129 (Version 1)
Quarter: 2019Q4

REPORT INFORMATION
  Report Type: Spontaneous
  Country: US (occurrence: US)
  Receive Date: 20191122
  Receipt Date: 20191122
  Transmission Date: 20200122
  Serious: No
  Sender: FDA-Public Use
  Company Number: None

PATIENT
  Age: 58 Year
  Sex: Female

DRUGS (1)
  1. COPAXONE [Suspect]
     Active Substance: GLATIRAMER ACETATE
     Route: 058
     Dates: start: 201901

REACTIONS (5)
  - Mobility decreased [None]
  - Dizziness [None]
  - Feeling hot [None]
  - Dyspnoea [None]
  - Inappropriate schedule of product administration [None]

NARRATIVE: CASE EVENT DATE: 20191120
